FAERS Safety Report 11211623 (Version 2)
Quarter: 2015Q3

REPORT INFORMATION
  Report Type: Spontaneous
  Country: GB (occurrence: GB)
  Receive Date: 20150623
  Receipt Date: 20150717
  Transmission Date: 20151125
  Serious: Yes (Death, Congenital Anomaly)
  Sender: FDA-Public Use
  Company Number: GB-JNJFOC-20150614610

PATIENT

DRUGS (3)
  1. RITONAVIR. [Suspect]
     Active Substance: RITONAVIR
     Indication: HIV INFECTION
     Route: 064
     Dates: start: 20130307
  2. TRUVADA [Suspect]
     Active Substance: EMTRICITABINE\TENOFOVIR DISOPROXIL FUMARATE
     Indication: ASYMPTOMATIC HIV INFECTION
     Route: 064
     Dates: start: 200905
  3. DARUNAVIR [Suspect]
     Active Substance: DARUNAVIR
     Indication: ASYMPTOMATIC HIV INFECTION
     Route: 064
     Dates: start: 20130307

REACTIONS (8)
  - Placental disorder [Not Recovered/Not Resolved]
  - Foetal exposure during pregnancy [Recovered/Resolved]
  - Amniotic band syndrome [Not Recovered/Not Resolved]
  - Neonatal aspiration [Not Recovered/Not Resolved]
  - Syndactyly [Not Recovered/Not Resolved]
  - Stillbirth [Fatal]
  - Limb malformation [Not Recovered/Not Resolved]
  - Talipes [Not Recovered/Not Resolved]

NARRATIVE: CASE EVENT DATE: 2014
